FAERS Safety Report 14116708 (Version 2)
Quarter: 2017Q4

REPORT INFORMATION
  Report Type: Spontaneous
  Country: US (occurrence: US)
  Receive Date: 20171023
  Receipt Date: 20171026
  Transmission Date: 20180321
  Serious: Yes (Other)
  Sender: FDA-Public Use
  Company Number: US-PFIZER INC-2017452698

PATIENT
  Age: 55 Year
  Sex: Female
  Weight: 51.79 kg

DRUGS (2)
  1. IBRANCE [Suspect]
     Active Substance: PALBOCICLIB
     Dosage: 75 MG, DAILY (1 CAPSULE DAILY 1-21/DAYS)
     Route: 048
     Dates: start: 201707
  2. IBRANCE [Suspect]
     Active Substance: PALBOCICLIB
     Indication: BREAST CANCER
     Dosage: 100 MG, CYCLIC [DAILY X 21 DAYS AND 7 DAYS OFF]
     Route: 048
     Dates: start: 201707

REACTIONS (3)
  - Decreased appetite [Unknown]
  - Neutropenia [Unknown]
  - Dizziness [Unknown]
